FAERS Safety Report 11377632 (Version 1)
Quarter: 2015Q3

REPORT INFORMATION
  Report Type: Spontaneous
  Country: US (occurrence: US)
  Receive Date: 20150811
  Receipt Date: 20150811
  Transmission Date: 20151125
  Serious: No
  Sender: FDA-Public Use
  Company Number: US-ELI_LILLY_AND_COMPANY-US200904004905

PATIENT
  Sex: Female

DRUGS (2)
  1. HUMULIN N [Suspect]
     Active Substance: INSULIN HUMAN
     Dates: start: 200901
  2. HUMULIN R [Suspect]
     Active Substance: INSULIN HUMAN
     Dates: start: 200904

REACTIONS (1)
  - Blood glucose fluctuation [Not Recovered/Not Resolved]
